FAERS Safety Report 17282966 (Version 1)
Quarter: 2020Q1

REPORT INFORMATION
  Report Type: Spontaneous
  Country: US (occurrence: US)
  Receive Date: 20200117
  Receipt Date: 20200117
  Transmission Date: 20200409
  Serious: Yes (Hospitalization)
  Sender: FDA-Public Use
  Company Number: US-FRESENIUS MEDICAL CARE RENAL THERAPIES GROUP-FMC-2001-000047

PATIENT
  Sex: Male

DRUGS (20)
  1. NEURONTIN [Concomitant]
     Active Substance: GABAPENTIN
  2. FLOMAX [Concomitant]
     Active Substance: TAMSULOSIN HYDROCHLORIDE
  3. LOSARTAN. [Concomitant]
     Active Substance: LOSARTAN
  4. DELFLEX WITH DEXTROSE 1.5% LOW MAGNESIUM LOW CALCIUM [Suspect]
     Active Substance: CALCIUM CHLORIDE\DEXTROSE\MAGNESIUM CHLORIDE\SODIUM CHLORIDE\SODIUM LACTATE
     Indication: END STAGE RENAL DISEASE
     Dosage: FILL VOLUME = 1950 ML, 5 EXCHANGES, NO LAST FILL, NO DAYTIME EXCHANGE, DWELL TIME = 45 MINUTES
     Route: 033
     Dates: start: 20160808
  5. DELFLEX WITH DEXTROSE 2.5% LOW MAGNESIUM LOW CALCIUM [Suspect]
     Active Substance: CALCIUM CHLORIDE\DEXTROSE\MAGNESIUM CHLORIDE\SODIUM CHLORIDE\SODIUM LACTATE
     Indication: END STAGE RENAL DISEASE
     Dosage: FILL VOLUME = 1950 ML, 5 EXCHANGES, NO LAST FILL, NO DAYTIME EXCHANGE, DWELL TIME = 45 MINUTES
     Route: 033
     Dates: start: 20160808
  6. HYDRALAZINE [Concomitant]
     Active Substance: HYDRALAZINE HYDROCHLORIDE
  7. ZANTAC [Concomitant]
     Active Substance: RANITIDINE HYDROCHLORIDE
  8. DELFLEX WITH DEXTROSE 4.25% LOW MAGNESIUM LOW CALCIUM [Suspect]
     Active Substance: CALCIUM CHLORIDE\DEXTROSE\MAGNESIUM CHLORIDE\SODIUM CHLORIDE\SODIUM LACTATE
     Indication: END STAGE RENAL DISEASE
     Dosage: FILL VOLUME = 1950 ML, 5 EXCHANGES, NO LAST FILL, NO DAYTIME EXCHANGE, DWELL TIME = 45 MINUTES
     Route: 033
     Dates: start: 20160808
  9. CALCITRIOL. [Concomitant]
     Active Substance: CALCITRIOL
  10. VITAMIN D3 [Concomitant]
     Active Substance: CHOLECALCIFEROL
  11. LASIX [Concomitant]
     Active Substance: FUROSEMIDE
  12. LANTUS [Concomitant]
     Active Substance: INSULIN GLARGINE
  13. COREG [Concomitant]
     Active Substance: CARVEDILOL
  14. IRON [Concomitant]
     Active Substance: IRON
  15. LEXAPRO [Concomitant]
     Active Substance: ESCITALOPRAM OXALATE
  16. SODIUM BICARBONATE. [Concomitant]
     Active Substance: SODIUM BICARBONATE
  17. CLONIDINE. [Concomitant]
     Active Substance: CLONIDINE
  18. HYDROCODONE [Concomitant]
     Active Substance: HYDROCODONE
  19. REGULAR INSULIN [Concomitant]
     Active Substance: INSULIN NOS
  20. RENAGEL [Concomitant]
     Active Substance: SEVELAMER HYDROCHLORIDE

REACTIONS (1)
  - Peritonitis bacterial [Recovering/Resolving]
